FAERS Safety Report 6008096-0 (Version None)
Quarter: 2008Q4

REPORT INFORMATION
  Report Type: 
  Country: None (occurrence: None)
  Receive Date: 20081217
  Receipt Date: 20080820
  Transmission Date: 20090506
  Serious: No
  Sender: FDA-Public Use
  Company Number: US-ASTRAZENECA-2008UW17127

PATIENT
  Age: 50 Year
  Sex: Female
  Weight: 72.1 kg

DRUGS (1)
  1. CRESTOR [Suspect]
     Indication: BLOOD CHOLESTEROL INCREASED
     Dosage: 10 MG
     Route: 048
     Dates: start: 20080401

REACTIONS (1)
  - BLOOD CHOLESTEROL INCREASED [None]
